FAERS Safety Report 6638646-2 (Version None)
Quarter: 2010Q1

REPORT INFORMATION
  Report Type: 
  Country: None (occurrence: None)
  Receive Date: 20100317
  Receipt Date: 20100309
  Transmission Date: 20100710
  Serious: Yes (Hospitalization, Other)
  Sender: FDA-Public Use
  Company Number: PT-AMGEN-QUU398265

PATIENT
  Sex: Female

DRUGS (3)
  1. NPLATE [Suspect]
     Indication: IDIOPATHIC THROMBOCYTOPENIC PURPURA
     Dates: start: 20100210
  2. IMMU-G [Concomitant]
  3. PREDNISOLONE [Concomitant]
     Route: 042

REACTIONS (2)
  - BACTERAEMIA [None]
  - HAEMORRHAGIC STROKE [None]
